FAERS Safety Report 25245312 (Version 1)
Quarter: 2025Q2

REPORT INFORMATION
  Report Type: Report from Study
  Country: US (occurrence: US)
  Receive Date: 20250428
  Receipt Date: 20250428
  Transmission Date: 20250717
  Serious: Yes (Hospitalization, Other)
  Sender: ACADIA PHARMACEUTICALS
  Company Number: US-ACADIA PHARMACEUTICALS INC.-ACA-2025-PIM-004769

PATIENT
  Sex: Male

DRUGS (29)
  1. NUPLAZID [Suspect]
     Active Substance: PIMAVANSERIN TARTRATE
     Indication: Parkinson^s disease
     Dosage: 34 MILLIGRAM, QD
     Route: 048
  2. OMEPRAZOLE [Concomitant]
     Active Substance: OMEPRAZOLE
  3. GENTEAL TEARS [HYPROMELLOSE] [Concomitant]
  4. ROPINIROLE [Concomitant]
     Active Substance: ROPINIROLE
  5. SENNOSIDES A AND B [Concomitant]
     Active Substance: SENNOSIDES A AND B
  6. TRAMADOL [Concomitant]
     Active Substance: TRAMADOL
  7. TYLENOL [Concomitant]
     Active Substance: ACETAMINOPHEN
  8. MYRBETRIQ [Concomitant]
     Active Substance: MIRABEGRON
  9. CENTRUM ADULTS [Concomitant]
  10. TROSPIUM [Concomitant]
     Active Substance: TROSPIUM
  11. VITAMIN C [Concomitant]
     Active Substance: ASCORBIC ACID
  12. THIAMINE [Concomitant]
     Active Substance: THIAMINE
  13. IRON [Concomitant]
     Active Substance: IRON
  14. CLARITIN [Concomitant]
     Active Substance: LORATADINE
  15. KRILL OIL [Concomitant]
     Active Substance: DIETARY SUPPLEMENT\KRILL OIL
  16. ROSUVASTATIN [Concomitant]
     Active Substance: ROSUVASTATIN
  17. CARBIDOPA LEVODOPA [Concomitant]
     Active Substance: CARBIDOPA\LEVODOPA
  18. OSTEO BI-FLEX [CHONDROITIN SULFATE;GLUCOSAMINE HYDROCHLORIDE] [Concomitant]
  19. PROBIOTICS NOS [Concomitant]
     Active Substance: PROBIOTICS NOS
  20. MELATONIN [Concomitant]
     Active Substance: MELATONIN
  21. XARELTO [Concomitant]
     Active Substance: RIVAROXABAN
  22. CELEBREX [Concomitant]
     Active Substance: CELECOXIB
  23. LYRICA [Concomitant]
     Active Substance: PREGABALIN
  24. CLONAZEPAM [Concomitant]
     Active Substance: CLONAZEPAM
  25. CLINDAMYCIN [Concomitant]
     Active Substance: CLINDAMYCIN
  26. COLACE [Concomitant]
     Active Substance: DOCUSATE SODIUM
  27. LISINOPRIL [Concomitant]
     Active Substance: LISINOPRIL
  28. ARMODAFINIL [Concomitant]
     Active Substance: ARMODAFINIL
  29. DULOXETINE [Concomitant]
     Active Substance: DULOXETINE

REACTIONS (2)
  - Influenza [Unknown]
  - Atrial fibrillation [Unknown]
